FAERS Safety Report 17254128 (Version 1)
Quarter: 2020Q1

REPORT INFORMATION
  Report Type: Spontaneous
  Country: AT (occurrence: AT)
  Receive Date: 20200109
  Receipt Date: 20200109
  Transmission Date: 20200409
  Serious: Yes (Other)
  Sender: FDA-Public Use
  Company Number: AT-MYLANLABS-2020M1002071

PATIENT

DRUGS (5)
  1. AZITHROMYCIN ANHYDROUS. [Suspect]
     Active Substance: AZITHROMYCIN ANHYDROUS
     Indication: DIARRHOEA INFECTIOUS
     Dosage: 500 MG, 1X/DAY (FOR 3 DAYS)
     Dates: start: 201811, end: 2018
  2. AZITHROMYCIN ANHYDROUS. [Suspect]
     Active Substance: AZITHROMYCIN ANHYDROUS
     Indication: DIARRHOEA HAEMORRHAGIC
     Dosage: UNK
  3. AZITHROMYCIN ANHYDROUS. [Suspect]
     Active Substance: AZITHROMYCIN ANHYDROUS
     Indication: INFECTION
  4. RIFAXIMIN. [Suspect]
     Active Substance: RIFAXIMIN
     Indication: INFECTION
     Dosage: 200 MG, 3X/DAY (FOR 10DAYS)
     Dates: start: 201811, end: 2018
  5. RIFAXIMIN. [Suspect]
     Active Substance: RIFAXIMIN
     Indication: DIARRHOEA HAEMORRHAGIC
     Dosage: UNK

REACTIONS (2)
  - Drug ineffective for unapproved indication [Unknown]
  - Off label use [Unknown]

NARRATIVE: CASE EVENT DATE: 2018
